FAERS Safety Report 17050105 (Version 1)
Quarter: 2019Q4

REPORT INFORMATION
  Report Type: Spontaneous
  Country: US (occurrence: US)
  Receive Date: 20191119
  Receipt Date: 20191119
  Transmission Date: 20200122
  Serious: Yes (Other)
  Sender: FDA-Public Use
  Company Number: US-TEVA-2019-US-1138266

PATIENT
  Age: 8 Decade
  Sex: Female

DRUGS (3)
  1. QVAR REDIHALER [Suspect]
     Active Substance: BECLOMETHASONE DIPROPIONATE
     Dosage: DOSAGE NOT PROVIDED
     Route: 065
  2. YUPELRI [Suspect]
     Active Substance: REVEFENACIN
     Route: 065
  3. ARCAPTA NEOHALER [Suspect]
     Active Substance: INDACATEROL MALEATE
     Route: 065

REACTIONS (2)
  - Tongue haemorrhage [Unknown]
  - Tongue ulceration [Unknown]
